FAERS Safety Report 5118418-0 (Version None)
Quarter: 2006Q3

REPORT INFORMATION
  Report Type: 
  Country: None (occurrence: None)
  Receive Date: 20060927
  Receipt Date: 20060919
  Transmission Date: 20061208
  Serious: Yes (Hospitalization, Other)
  Sender: FDA-Public Use
  Company Number: 230056

PATIENT
  Age: 70 Year
  Sex: Female

DRUGS (8)
  1. ACTIVAN (ALTEPLASE)PWDR + SOLVENT, INFUSION SOLN [Suspect]
     Indication: CEREBRAL ARTERY EMBOLISM
     Dosage: 37.7 MG, SINGLE, INTRAVENOUS
     Route: 042
     Dates: start: 20060730, end: 20060730
  2. WARFARIN SODIUM [Suspect]
     Indication: ATRIAL FIBRILLATION
     Dosage: UNK, UNK, UNK
  3. RADICUT (EDARAVONE) [Concomitant]
  4. GLYCERIN (GLYCERIN) [Concomitant]
  5. AMPICILLIN SODIUM W/SULBACTAM SODIUM (AMPICILLIN SODIUM, SULBACTAM SOD [Concomitant]
  6. CIBENZOLINE SUCCINATE (CIFENLINE) [Concomitant]
  7. VASOLAN (ISOXSUPRINE HYDROCHLORIDE) [Concomitant]
  8. DIGOXIN [Concomitant]

REACTIONS (8)
  - ABDOMINAL HAEMATOMA [None]
  - BLADDER DISTENSION [None]
  - CHOLECYSTITIS [None]
  - CHOLELITHIASIS [None]
  - HAEMATURIA [None]
  - OLIGURIA [None]
  - PLATELET COUNT DECREASED [None]
  - PNEUMONIA ASPIRATION [None]
